FAERS Safety Report 8444422-0 (Version None)
Quarter: 2012Q2

REPORT INFORMATION
  Report Type: 
  Country: None (occurrence: None)
  Receive Date: 20120618
  Receipt Date: 20120604
  Transmission Date: 20120825
  Serious: Yes (Other)
  Sender: FDA-Public Use
  Company Number: US-BAYER-2012-056445

PATIENT
  Age: 62 Year
  Sex: Male

DRUGS (1)
  1. ASPIRIN [Suspect]
     Indication: PRODUCT USED FOR UNKNOWN INDICATION
     Dosage: DOSE: UNKNOWN

REACTIONS (2)
  - UNEVALUABLE EVENT [None]
  - PROSTATIC SPECIFIC ANTIGEN INCREASED [None]
